FAERS Safety Report 14523525 (Version 1)
Quarter: 2018Q1

REPORT INFORMATION
  Report Type: Spontaneous
  Country: AU (occurrence: AU)
  Receive Date: 20180212
  Receipt Date: 20180212
  Transmission Date: 20180509
  Serious: Yes (Other)
  Sender: FDA-Public Use
  Company Number: AU-009507513-1712AUS009136

PATIENT
  Age: 37 Year
  Sex: Female
  Weight: 67 kg

DRUGS (1)
  1. IMPLANON [Suspect]
     Active Substance: ETONOGESTREL
     Indication: CONTRACEPTION
     Dosage: UNK
     Route: 059
     Dates: start: 201608, end: 20171128

REACTIONS (5)
  - Device deployment issue [Recovered/Resolved]
  - Unintended pregnancy [Recovered/Resolved]
  - Pregnancy with implant contraceptive [Recovered/Resolved]
  - Uterine dilation and curettage [Unknown]
  - General anaesthesia [Unknown]

NARRATIVE: CASE EVENT DATE: 201608
